FAERS Safety Report 15632588 (Version 9)
Quarter: 2022Q2

REPORT INFORMATION
  Report Type: Spontaneous
  Country: US (occurrence: US)
  Receive Date: 20181119
  Receipt Date: 20220504
  Transmission Date: 20220720
  Serious: No
  Sender: FDA-Public Use
  Company Number: US-PFIZER INC-2018476665

PATIENT
  Age: 51 Year
  Sex: Female
  Weight: 63.5 kg

DRUGS (2)
  1. LYRICA [Suspect]
     Active Substance: PREGABALIN
     Indication: Fibromyalgia
     Dosage: 150 MG, 3X/DAY
     Route: 048
  2. LYRICA [Suspect]
     Active Substance: PREGABALIN
     Indication: Systemic lupus erythematosus
     Dosage: 150 MG, 3X/DAY
     Route: 048

REACTIONS (7)
  - Intentional product misuse [Unknown]
  - Feeling abnormal [Unknown]
  - Illness [Unknown]
  - Withdrawal syndrome [Unknown]
  - Pain [Unknown]
  - Sitting disability [Unknown]
  - Dizziness [Unknown]
